FAERS Safety Report 13058531 (Version 1)
Quarter: 2016Q4

REPORT INFORMATION
  Report Type: Spontaneous
  Country: US (occurrence: US)
  Receive Date: 20161223
  Receipt Date: 20161223
  Transmission Date: 20170207
  Serious: No
  Sender: FDA-Public Use
  Company Number: US-BAUSCH-BL-2016-000088

PATIENT
  Age: 54 Year
  Sex: Female

DRUGS (1)
  1. XENAZINE [Suspect]
     Active Substance: TETRABENAZINE
     Indication: HUNTINGTON^S DISEASE
     Dosage: CURRENT DOSE WAS 37.5 MG IN THE MORNING, 37.5 MG IN THE AFTERNOON AND 25 MG IN THE EVENING BY MOUTH.
     Route: 048

REACTIONS (3)
  - Mood altered [Unknown]
  - Drug dose omission [Unknown]
  - Dyskinesia [Unknown]

NARRATIVE: CASE EVENT DATE: 20160102
